APPROVED DRUG PRODUCT: OXYBUTYNIN CHLORIDE
Active Ingredient: OXYBUTYNIN CHLORIDE
Strength: 10MG
Dosage Form/Route: TABLET, EXTENDED RELEASE;ORAL
Application: A076644 | Product #001
Applicant: PHARMOBEDIENT CONSULTING LLC
Approved: Nov 9, 2006 | RLD: No | RS: No | Type: DISCN